FAERS Safety Report 9415674 (Version 1)
Quarter: 2013Q3

REPORT INFORMATION
  Report Type: Spontaneous
  Country: CA (occurrence: CA)
  Receive Date: 20130723
  Receipt Date: 20130723
  Transmission Date: 20140515
  Serious: Yes (Other)
  Sender: FDA-Public Use
  Company Number: CA-009507513-1307CAN012856

PATIENT
  Sex: Female

DRUGS (3)
  1. VICTRELIS [Suspect]
     Indication: HEPATITIS C
     Dosage: 28 DF, QW
     Dates: start: 20130227
  2. PEGASYS [Suspect]
     Indication: HEPATITIS C
     Dosage: 180 MICROGRAM, UNK
     Route: 058
     Dates: start: 20130227
  3. RIBAVIRIN [Suspect]
     Indication: HEPATITIS C
     Dosage: 1000 MG, QD
     Route: 048
     Dates: start: 20130227, end: 20130710

REACTIONS (3)
  - Viral load increased [Not Recovered/Not Resolved]
  - Weight decreased [Unknown]
  - Malaise [Unknown]
